FAERS Safety Report 4820505-9 (Version None)
Quarter: 2005Q4

REPORT INFORMATION
  Report Type: 
  Country: None (occurrence: None)
  Receive Date: 20051014
  Receipt Date: 20050909
  Transmission Date: 20060501
  Serious: No
  Sender: FDA-Public Use
  Company Number: 2005SP002737

PATIENT
  Age: 74 Year
  Sex: Male
  Weight: 68.0396 kg

DRUGS (5)
  1. LUNESTA [Suspect]
     Indication: INSOMNIA
     Dosage: SEE IMAGE, ORAL
     Route: 048
     Dates: start: 20050701, end: 20050101
  2. LUNESTA [Suspect]
     Indication: INSOMNIA
     Dosage: SEE IMAGE, ORAL
     Route: 048
     Dates: start: 20050101, end: 20050801
  3. AMBIEN [Concomitant]
  4. PROSCAR [Concomitant]
  5. HYTRIN [Concomitant]

REACTIONS (1)
  - GYNAECOMASTIA [None]
